FAERS Safety Report 4692256-5 (Version None)
Quarter: 2005Q2

REPORT INFORMATION
  Report Type: 
  Country: None (occurrence: None)
  Receive Date: 20050614
  Receipt Date: 20050601
  Transmission Date: 20051028
  Serious: Yes (Other)
  Sender: FDA-Public Use
  Company Number: 2005071230

PATIENT
  Age: 54 Year
  Sex: Female

DRUGS (3)
  1. AROMASIN [Suspect]
     Indication: BREAST CANCER
     Dosage: ORAL
     Route: 048
  2. DRENISON (FLUDROXYCORTIDE) [Concomitant]
  3. BANAN [Concomitant]

REACTIONS (4)
  - BLISTER [None]
  - LICHEN PLANUS [None]
  - PRURIGO [None]
  - SKIN DISCOLOURATION [None]
